FAERS Safety Report 8083368-7 (Version None)
Quarter: 2012Q1

REPORT INFORMATION
  Report Type: 
  Country: None (occurrence: None)
  Receive Date: 20120127
  Receipt Date: 20110113
  Transmission Date: 20120608
  Serious: No
  Sender: FDA-Public Use
  Company Number: US-ABBOTT-11P-163-0697933-00

PATIENT
  Sex: Male
  Weight: 113.5 kg

DRUGS (11)
  1. CRESTOR [Concomitant]
     Indication: BLOOD CHOLESTEROL INCREASED
  2. ALLOPURINOL [Concomitant]
     Indication: GOUT
  3. HUMIRA [Suspect]
     Route: 058
     Dates: start: 20101201
  4. CITALOPRAM [Concomitant]
     Indication: PRODUCT USED FOR UNKNOWN INDICATION
  5. FLEXERIL [Concomitant]
     Indication: PRODUCT USED FOR UNKNOWN INDICATION
  6. HUMIRA [Suspect]
     Indication: PSORIATIC ARTHROPATHY
     Route: 058
     Dates: start: 20101101, end: 20101201
  7. HYDROCODONE BITARTRATE [Concomitant]
     Indication: PAIN
     Dosage: AS NEEDED
  8. AMLODIPINE [Concomitant]
     Indication: HYPERTENSION
  9. COLCHICINE [Concomitant]
     Indication: GOUT
     Dosage: AS NEEDED
  10. METAXALONE [Concomitant]
     Indication: PRODUCT USED FOR UNKNOWN INDICATION
     Dosage: AS NEEDED
  11. BENICAR [Concomitant]
     Indication: HYPERTENSION

REACTIONS (8)
  - MENTAL STATUS CHANGES [None]
  - FEELING ABNORMAL [None]
  - PSORIASIS [None]
  - AMNESIA [None]
  - DRUG INEFFECTIVE [None]
  - CONFUSIONAL STATE [None]
  - FATIGUE [None]
  - MEMORY IMPAIRMENT [None]
